FAERS Safety Report 26061226 (Version 1)
Quarter: 2025Q4

REPORT INFORMATION
  Report Type: Report from Study
  Country: CN (occurrence: CN)
  Receive Date: 20251118
  Receipt Date: 20251118
  Transmission Date: 20260118
  Serious: Yes (Other)
  Sender: VERITY PHARMACEUTICALS INC.
  Company Number: CN-VER-202500048

PATIENT

DRUGS (3)
  1. TRIPTORELIN [Suspect]
     Active Substance: TRIPTORELIN
     Indication: Hormone-dependent prostate cancer
     Route: 065
  2. ABIRATERONE [Suspect]
     Active Substance: ABIRATERONE
     Indication: Hormone-dependent prostate cancer
     Route: 065
  3. PREDNISONE [Suspect]
     Active Substance: PREDNISONE

REACTIONS (15)
  - Hepatic function abnormal [Unknown]
  - Malignant neoplasm progression [Unknown]
  - Oedema [Unknown]
  - Fatigue [Unknown]
  - Gastrointestinal disorder [Unknown]
  - Hot flush [Unknown]
  - Hyperglycaemia [Unknown]
  - Hypertension [Unknown]
  - Hypokalaemia [Unknown]
  - Renal impairment [Unknown]
  - Pain [Unknown]
  - Rash [Unknown]
  - Sleep disorder [Unknown]
  - Urinary tract disorder [Unknown]
  - Weight fluctuation [Unknown]
